FAERS Safety Report 7655319-8 (Version None)
Quarter: 2011Q3

REPORT INFORMATION
  Report Type: 
  Country: None (occurrence: None)
  Receive Date: 20110804
  Receipt Date: 20110725
  Transmission Date: 20111222
  Serious: Yes (Other)
  Sender: FDA-Public Use
  Company Number: TN-SANOFI-AVENTIS-2011SA049055

PATIENT
  Age: 32 Year
  Sex: Male

DRUGS (1)
  1. CEFOTAXIME [Suspect]
     Route: 065

REACTIONS (7)
  - RASH [None]
  - PYREXIA [None]
  - BLOOD CREATININE INCREASED [None]
  - WHITE BLOOD CELL COUNT INCREASED [None]
  - DRUG RASH WITH EOSINOPHILIA AND SYSTEMIC SYMPTOMS [None]
  - EOSINOPHIL COUNT INCREASED [None]
  - TRANSAMINASES INCREASED [None]
